FAERS Safety Report 6078004-5 (Version None)
Quarter: 2009Q1

REPORT INFORMATION
  Report Type: 
  Country: None (occurrence: None)
  Receive Date: 20090213
  Receipt Date: 20090205
  Transmission Date: 20090719
  Serious: Yes (Death)
  Sender: FDA-Public Use
  Company Number: US-PURDUE-USA_2009_0036882

PATIENT
  Age: 57 Year
  Sex: Female

DRUGS (1)
  1. OXYCONTIN [Suspect]
     Indication: CANCER PAIN
     Dosage: 40 MG, DAILY
     Dates: start: 20070601

REACTIONS (1)
  - NEOPLASM MALIGNANT [None]
